FAERS Safety Report 8243689 (Version 2)
Quarter: 2013Q1

REPORT INFORMATION
  Report Type: Spontaneous
  Country: US (occurrence: US)
  Receive Date: 20111114
  Receipt Date: 20130320
  Transmission Date: 20140127
  Serious: Yes (Hospitalization)
  Sender: FDA-Public Use
  Company Number: US-GLAXOSMITHKLINE-A0844824A

PATIENT
  Age: 73 Year
  Sex: Male

DRUGS (1)
  1. AVANDIA [Suspect]
     Indication: TYPE 2 DIABETES MELLITUS
     Dosage: 8MG PER DAY
     Route: 048
     Dates: start: 20050509, end: 20080228

REACTIONS (5)
  - Cardiac failure congestive [Recovering/Resolving]
  - Renal failure [Unknown]
  - Sepsis [Unknown]
  - Cholelithiasis [Unknown]
  - Silent myocardial infarction [Unknown]
